FAERS Safety Report 5026226-4 (Version None)
Quarter: 2006Q2

REPORT INFORMATION
  Report Type: 
  Country: None (occurrence: None)
  Receive Date: 20060608
  Receipt Date: 20060513
  Transmission Date: 20061013
  Serious: Yes (Hospitalization)
  Sender: FDA-Public Use
  Company Number: A-US2006-12360

PATIENT
  Age: 67 Year
  Sex: Female

DRUGS (1)
  1. TRACLEER [Suspect]
     Indication: PULMONARY HYPERTENSION
     Dosage: 125 MG, BID, ORAL
     Route: 048
     Dates: start: 20051001

REACTIONS (5)
  - BLOOD ALBUMIN DECREASED [None]
  - HEPATITIS ACUTE [None]
  - LETHARGY [None]
  - RASH [None]
  - THROMBIN TIME PROLONGED [None]
